FAERS Safety Report 11311570 (Version 4)
Quarter: 2015Q3

REPORT INFORMATION
  Report Type: Report from Study
  Country: AU (occurrence: AU)
  Receive Date: 20150727
  Receipt Date: 20150907
  Transmission Date: 20151125
  Serious: Yes (Hospitalization)
  Sender: FDA-Public Use
  Company Number: AU-ROCHE-1609690

PATIENT
  Age: 83 Year
  Sex: Male
  Weight: 74.2 kg

DRUGS (14)
  1. DYMADON P [Concomitant]
     Indication: PAIN
     Route: 065
  2. MAXOLON [Concomitant]
     Active Substance: METOCLOPRAMIDE HYDROCHLORIDE
     Indication: NAUSEA
     Dosage: DOSE: 1 TO 2 TABLETS
     Route: 065
  3. ALLOHEXAL [Concomitant]
     Route: 065
  4. OBINUTUZUMAB [Suspect]
     Active Substance: OBINUTUZUMAB
     Indication: CHRONIC LYMPHOCYTIC LEUKAEMIA
     Dosage: C1D1 (100 MG); LAST DOSE PRIOR TO ONSET OF EVENT, LOSS OF CONSCIOUSNESS: ON 09/JUL/2015 (C1D2, 900MG
     Route: 042
     Dates: start: 20150708
  5. BION TEARS [Concomitant]
     Active Substance: DEXTRAN 70\HYPROMELLOSE 2910 (4000 MPA.S)
     Indication: DRY EYE
     Dosage: STRENGTH: 0.3-0.1%, 0.4ML MINIMS.
     Route: 065
  6. CHLORAMBUCIL [Suspect]
     Active Substance: CHLORAMBUCIL
     Route: 048
     Dates: start: 20150804
  7. SODIUM BICARBONATE. [Concomitant]
     Active Substance: SODIUM BICARBONATE
     Dosage: BRAND: ORION. MOUTH WASH, DO NOT SWOLLOW.
     Route: 065
  8. ASPIRIN. [Concomitant]
     Active Substance: ASPIRIN
     Indication: PROPHYLAXIS
     Route: 065
  9. OBINUTUZUMAB [Suspect]
     Active Substance: OBINUTUZUMAB
     Route: 042
     Dates: start: 20150804
  10. NEXIUM [Concomitant]
     Active Substance: ESOMEPRAZOLE MAGNESIUM
     Dosage: SWOLLOW WHOLE TABLET AS REQUIRED.
     Route: 065
  11. CHLORAMBUCIL [Suspect]
     Active Substance: CHLORAMBUCIL
     Indication: CHRONIC LYMPHOCYTIC LEUKAEMIA
     Dosage: MOST RECENT DOSE PRIOR TO ONSET OF EVENT CONSTIPATION: 08/JUL/2015. DOSE DELAYED AND STOPPED ON 14/J
     Route: 048
     Dates: start: 20150708
  12. ATENOLOL. [Suspect]
     Active Substance: ATENOLOL
     Indication: HYPERTENSION
     Route: 065
  13. DYMADON P [Concomitant]
     Indication: PYREXIA
  14. ATENOLOL. [Suspect]
     Active Substance: ATENOLOL
     Route: 065

REACTIONS (2)
  - Constipation [Not Recovered/Not Resolved]
  - Loss of consciousness [Recovered/Resolved]

NARRATIVE: CASE EVENT DATE: 20150714
